FAERS Safety Report 9030161 (Version 3)
Quarter: 2013Q2

REPORT INFORMATION
  Report Type: Spontaneous
  Country: IT (occurrence: IT)
  Receive Date: 20130125
  Receipt Date: 20130416
  Transmission Date: 20140414
  Serious: Yes (Hospitalization)
  Sender: FDA-Public Use
  Company Number: IT-BRISTOL-MYERS SQUIBB COMPANY-17300104

PATIENT
  Age: 65 Year
  Sex: Male
  Weight: 65 kg

DRUGS (4)
  1. COUMADIN TABS 5 MG [Suspect]
     Indication: THROMBOSIS
     Route: 048
     Dates: start: 20120112, end: 20120720
  2. ARANESP [Concomitant]
  3. CERTICAN [Concomitant]
  4. CELLCEPT [Concomitant]

REACTIONS (1)
  - Muscle rupture [Recovered/Resolved with Sequelae]
